FAERS Safety Report 23787164 (Version 2)
Quarter: 2024Q2

REPORT INFORMATION
  Report Type: Report from Study
  Country: US (occurrence: US)
  Receive Date: 20240426
  Receipt Date: 20240608
  Transmission Date: 20240716
  Serious: Yes (Hospitalization)
  Sender: FDA-Public Use
  Company Number: US-ABBVIE-5722253

PATIENT
  Age: 67 Year
  Sex: Male
  Weight: 96 kg

DRUGS (2)
  1. HUMIRA [Suspect]
     Active Substance: ADALIMUMAB
     Indication: Colitis ulcerative
     Dosage: FORM STRENGTH: 40 MILLIGRAM?START DATE TEXT: 3 OR MORE
     Route: 058
  2. HUMIRA [Suspect]
     Active Substance: ADALIMUMAB
     Dosage: FORM STRENGTH: 40 MILLIGRAM
     Route: 058
     Dates: start: 20200820

REACTIONS (4)
  - Intervertebral disc protrusion [Recovering/Resolving]
  - Interstitial lung disease [Unknown]
  - Back pain [Recovering/Resolving]
  - Nerve compression [Recovering/Resolving]

NARRATIVE: CASE EVENT DATE: 20231101
